FAERS Safety Report 12563061 (Version 2)
Quarter: 2016Q3

REPORT INFORMATION
  Report Type: Report from Study
  Country: GB (occurrence: GB)
  Receive Date: 20160715
  Receipt Date: 20160728
  Transmission Date: 20161109
  Serious: Yes (Hospitalization, Other)
  Sender: FDA-Public Use
  Company Number: GB-BRISTOL-MYERS SQUIBB COMPANY-BMS-2016-041907

PATIENT
  Age: 69 Year
  Sex: Female

DRUGS (11)
  1. NIVOLUMAB [Suspect]
     Active Substance: NIVOLUMAB
     Dosage: 158 MG, TOTAL
     Route: 065
     Dates: start: 20151201, end: 20151201
  2. NIVOLUMAB [Suspect]
     Active Substance: NIVOLUMAB
     Dosage: 153 MG, TOTAL
     Route: 065
     Dates: start: 20160322, end: 20160322
  3. NIVOLUMAB [Suspect]
     Active Substance: NIVOLUMAB
     Indication: NON-SMALL CELL LUNG CANCER
     Dosage: 153 MG, Q3WK
     Route: 042
     Dates: start: 20151201
  4. NIVOLUMAB [Suspect]
     Active Substance: NIVOLUMAB
     Dosage: 167 MG, TOTAL
     Route: 065
     Dates: start: 20151229, end: 20151229
  5. NIVOLUMAB [Suspect]
     Active Substance: NIVOLUMAB
     Dosage: 153 MG, TOTAL
     Route: 065
     Dates: start: 20160223, end: 20160223
  6. NIVOLUMAB [Suspect]
     Active Substance: NIVOLUMAB
     Dosage: 153 MG, TOTAL
     Route: 065
     Dates: start: 20160308, end: 20160308
  7. NIVOLUMAB [Suspect]
     Active Substance: NIVOLUMAB
     Dosage: 156 MG, TOTAL
     Route: 065
     Dates: start: 20160126, end: 20160126
  8. NIVOLUMAB [Suspect]
     Active Substance: NIVOLUMAB
     Dosage: 153 MG, TOTAL
     Route: 065
     Dates: start: 20160503, end: 20160503
  9. NIVOLUMAB [Suspect]
     Active Substance: NIVOLUMAB
     Dosage: 167 MG, TOTAL
     Route: 065
     Dates: start: 20151215, end: 20151215
  10. NIVOLUMAB [Suspect]
     Active Substance: NIVOLUMAB
     Dosage: 167 MG, TOTAL
     Route: 065
     Dates: start: 20160112, end: 20160112
  11. NIVOLUMAB [Suspect]
     Active Substance: NIVOLUMAB
     Dosage: 156 MG, TOTAL
     Route: 065
     Dates: start: 20160209, end: 20160209

REACTIONS (1)
  - Lower respiratory tract infection [Unknown]

NARRATIVE: CASE EVENT DATE: 20160524
